FAERS Safety Report 5135838-9 (Version None)
Quarter: 2006Q4

REPORT INFORMATION
  Report Type: 
  Country: None (occurrence: None)
  Receive Date: 20061020
  Receipt Date: 20061011
  Transmission Date: 20070319
  Serious: Yes (Other)
  Sender: FDA-Public Use
  Company Number: TPA2006A01691

PATIENT
  Sex: Male

DRUGS (2)
  1. ROZEREM [Suspect]
     Dosage: PER ORAL
     Route: 048
  2. UNSPECIFIED ANTIDEPRESSANT MEDICATION (ANTIDEPRESSANTS) [Concomitant]

REACTIONS (4)
  - AGITATION [None]
  - INSOMNIA [None]
  - IRRITABILITY [None]
  - MANIA [None]
